FAERS Safety Report 11777784 (Version 2)
Quarter: 2015Q4

REPORT INFORMATION
  Report Type: Spontaneous
  Country: US (occurrence: US)
  Receive Date: 20151125
  Receipt Date: 20151210
  Transmission Date: 20160304
  Serious: Yes (Other)
  Sender: FDA-Public Use
  Company Number: US-LPDUSPRD-20150909

PATIENT
  Age: 42 Year
  Sex: Male

DRUGS (1)
  1. HYDRALAZINE HCL INJECTION, USP (0901-25) 20 MG/ML [Suspect]
     Active Substance: HYDRALAZINE HYDROCHLORIDE
     Dosage: 50 MG TWICE DAILY
     Route: 065

REACTIONS (6)
  - Influenza like illness [Unknown]
  - Autoimmune disorder [None]
  - Headache [Unknown]
  - Dehydration [None]
  - Drug-induced liver injury [Unknown]
  - Hepatic failure [Unknown]
